FAERS Safety Report 5662726-1 (Version None)
Quarter: 2008Q1

REPORT INFORMATION
  Report Type: 
  Country: None (occurrence: None)
  Receive Date: 20080313
  Receipt Date: 20080311
  Transmission Date: 20080703
  Serious: Yes (Hospitalization)
  Sender: FDA-Public Use
  Company Number: JP-AVENTIS-200810783JP

PATIENT
  Sex: Male

DRUGS (1)
  1. LASIX [Suspect]
     Route: 048

REACTIONS (2)
  - HYPOKALAEMIA [None]
  - MYOCARDIAL INFARCTION [None]
